FAERS Safety Report 20221106 (Version 2)
Quarter: 2022Q1

REPORT INFORMATION
  Report Type: Report from Study
  Country: US (occurrence: US)
  Receive Date: 20211223
  Receipt Date: 20220301
  Transmission Date: 20220423
  Serious: Yes (Other)
  Sender: FDA-Public Use
  Company Number: US-ABBVIE-21K-163-3924329-00

PATIENT
  Sex: Female

DRUGS (5)
  1. HUMIRA [Suspect]
     Active Substance: ADALIMUMAB
     Indication: Crohn^s disease
     Route: 058
  2. HUMIRA [Suspect]
     Active Substance: ADALIMUMAB
     Route: 058
  3. MODERNA COVID-19 VACCINE [Suspect]
     Active Substance: ELASOMERAN
     Indication: COVID-19 immunisation
     Dosage: 1ST DOSE
     Route: 030
     Dates: start: 20210305, end: 20210305
  4. MODERNA COVID-19 VACCINE [Suspect]
     Active Substance: ELASOMERAN
     Dosage: 2ND DOSE
     Route: 030
     Dates: start: 20210402, end: 20210402
  5. DIPHENHYDRAMINE HYDROCHLORIDE\LIDOCAINE HYDROCHLORIDE\NYSTATIN [Concomitant]
     Active Substance: DIPHENHYDRAMINE HYDROCHLORIDE\LIDOCAINE HYDROCHLORIDE\NYSTATIN
     Indication: Product used for unknown indication
     Dates: start: 20210909

REACTIONS (18)
  - Follicular cystitis [Recovering/Resolving]
  - Urinary incontinence [Unknown]
  - Crohn^s disease [Recovered/Resolved]
  - Spinal column injury [Unknown]
  - Intervertebral disc compression [Unknown]
  - Contusion [Unknown]
  - Wrist fracture [Recovered/Resolved]
  - Pericardial effusion [Not Recovered/Not Resolved]
  - Ear infection [Recovered/Resolved]
  - Hypersensitivity [Unknown]
  - Urinary tract infection [Recovering/Resolving]
  - Diarrhoea [Not Recovered/Not Resolved]
  - Illness [Unknown]
  - Headache [Recovered/Resolved]
  - Red blood cell count decreased [Unknown]
  - Oral candidiasis [Unknown]
  - Back pain [Unknown]
  - Ear infection [Recovering/Resolving]

NARRATIVE: CASE EVENT DATE: 20210101
